FAERS Safety Report 9705615 (Version 1)
Quarter: 2013Q4

REPORT INFORMATION
  Report Type: Spontaneous
  Country: US (occurrence: US)
  Receive Date: 20131122
  Receipt Date: 20131122
  Transmission Date: 20140711
  Serious: No
  Sender: FDA-Public Use
  Company Number: US-GILEAD-2008-0017229

PATIENT
  Sex: Female

DRUGS (19)
  1. LETAIRIS [Suspect]
     Indication: PULMONARY ARTERIAL HYPERTENSION
     Route: 048
     Dates: start: 20070410
  2. DICYCLOMINE [Concomitant]
  3. LIBRAX [Concomitant]
  4. VYTORIN [Concomitant]
  5. NAPROXEN [Concomitant]
  6. TRAMADOL [Concomitant]
  7. GABAPENTIN [Concomitant]
  8. FUROSEMIDE [Concomitant]
  9. ASA [Concomitant]
  10. NTG [Concomitant]
  11. RANITIDINE [Concomitant]
  12. METOPROLOL [Concomitant]
  13. METANX [Concomitant]
  14. OMEPRAZOLE [Concomitant]
  15. COZAAR [Concomitant]
  16. METFORMIN [Concomitant]
  17. GLYBURIDE [Concomitant]
  18. INSULIN [Concomitant]
  19. COUMADIN [Concomitant]

REACTIONS (1)
  - Oedema peripheral [None]
